FAERS Safety Report 15537132 (Version 1)
Quarter: 2018Q4

REPORT INFORMATION
  Report Type: Spontaneous
  Country: CA (occurrence: CA)
  Receive Date: 20181022
  Receipt Date: 20181022
  Transmission Date: 20190205
  Serious: Yes (Death)
  Sender: FDA-Public Use
  Company Number: CA-PFIZER INC-2018427458

PATIENT
  Age: 25 Year
  Sex: Female

DRUGS (3)
  1. CODEINE CONTIN [Suspect]
     Active Substance: CODEINE SULFATE
     Dosage: UNK
     Route: 065
  2. MORPHINE SULFATE. [Suspect]
     Active Substance: MORPHINE SULFATE
     Dosage: UNK
     Route: 065
  3. CODEINE CONTIN [Suspect]
     Active Substance: CODEINE SULFATE
     Dosage: UNK
     Route: 065

REACTIONS (5)
  - Drug dependence [Fatal]
  - Oxygen saturation decreased [Fatal]
  - Delirium [Fatal]
  - Urinary tract infection [Fatal]
  - Overdose [Fatal]
